FAERS Safety Report 5305935-3 (Version None)
Quarter: 2007Q2

REPORT INFORMATION
  Report Type: 
  Country: None (occurrence: None)
  Receive Date: 20070424
  Receipt Date: 20070416
  Transmission Date: 20071010
  Serious: Yes (Other)
  Sender: FDA-Public Use
  Company Number: DK-JNJFOC-20070403760

PATIENT
  Sex: Male

DRUGS (3)
  1. REMICADE [Suspect]
     Indication: ANKYLOSING SPONDYLITIS
     Dosage: 5 MG/KG; 2 INFUSIONS
     Route: 042
  2. METHOTREXATE [Concomitant]
  3. SALAZOPYRIN [Concomitant]

REACTIONS (1)
  - LUNG NEOPLASM [None]
